FAERS Safety Report 4348144-7 (Version None)
Quarter: 2004Q1

REPORT INFORMATION
  Report Type: 
  Country: None (occurrence: None)
  Receive Date: 20040325
  Receipt Date: 20040211
  Transmission Date: 20041129
  Serious: No
  Sender: FDA-Public Use
  Company Number: USA040259171

PATIENT

DRUGS (13)
  1. FORTEO [Suspect]
     Indication: OSTEOPOROSIS
     Dates: start: 20031101
  2. METHOTREXATE [Concomitant]
  3. COUMADIN [Concomitant]
  4. ARTHRALGIA [Concomitant]
  5. SINUS DISORDER [Concomitant]
  6. HEADACHE [Concomitant]
  7. EAR DISORDER [Concomitant]
  8. EPISTAXIS [Concomitant]
  9. INJECTION SITE BRUISING [Concomitant]
  10. VERTIGO [Concomitant]
  11. DIZZINESS [Concomitant]
  12. DIZZINESS POSTURAL [Concomitant]
  13. NAUSEA [Concomitant]

REACTIONS (13)
  - ARTHRALGIA [None]
  - DIFFICULTY IN WALKING [None]
  - DIZZINESS [None]
  - DIZZINESS POSTURAL [None]
  - EAR DISORDER [None]
  - EPISTAXIS [None]
  - HEADACHE [None]
  - INJECTION SITE HAEMORRHAGE [None]
  - NAUSEA [None]
  - OSTEOARTHRITIS [None]
  - RHEUMATOID ARTHRITIS [None]
  - SINUS DISORDER [None]
  - VERTIGO [None]
